FAERS Safety Report 4480942-1 (Version None)
Quarter: 2004Q4

REPORT INFORMATION
  Report Type: 
  Country: None (occurrence: None)
  Receive Date: 20041020
  Receipt Date: 20041020
  Transmission Date: 20050328
  Serious: Yes (Hospitalization)
  Sender: FDA-Public Use
  Company Number: None

PATIENT
  Age: 67 Year
  Sex: Male
  Weight: 63.86 kg

DRUGS (6)
  1. GEMCITABINE 200 MG VIALS ELI LILLY [Suspect]
     Indication: PANCREATIC CARCINOMA
     Dosage: 1000 MG /M2 Q WEEK X 3.1 IV
     Route: 042
     Dates: start: 20040628, end: 20041004
  2. NEXIUM [Concomitant]
  3. ZOCOR [Concomitant]
  4. FLOMAX [Concomitant]
  5. ALLOPURINOL [Concomitant]
  6. PANCREATIC ENZYMES [Concomitant]

REACTIONS (8)
  - ASTHENIA [None]
  - BENIGN PROSTATIC HYPERPLASIA [None]
  - BODY TEMPERATURE INCREASED [None]
  - CHILLS [None]
  - DYSURIA [None]
  - FATIGUE [None]
  - HYDRONEPHROSIS [None]
  - URINARY RETENTION [None]
